FAERS Safety Report 5572345-3 (Version None)
Quarter: 2007Q4

REPORT INFORMATION
  Report Type: 
  Country: None (occurrence: None)
  Receive Date: 20071219
  Receipt Date: 20071203
  Transmission Date: 20080405
  Serious: Yes (Other)
  Sender: FDA-Public Use
  Company Number: 2007JP005475

PATIENT
  Age: 76 Year
  Sex: Male
  Weight: 70 kg

DRUGS (11)
  1. TACROLIMUS [Suspect]
     Indication: RHEUMATOID ARTHRITIS
     Dosage: 1.5 MG, D, ORAL
     Route: 048
     Dates: start: 20070313
  2. PREDNISONE [Concomitant]
  3. LOXONIN (LOXOPROFEN SODIUM) [Concomitant]
  4. BONALON (ALENDRONIC ACID) TABLET [Concomitant]
  5. ACTOS [Concomitant]
  6. OMEPRAL [Concomitant]
  7. BAKTAR (SULFAMETHOXAZOLE, TRIMETHOPRIM) [Concomitant]
  8. MUCOSTA (REBAMIPIDE) FORMULATION UNKNOWN [Concomitant]
  9. DIART (AZOSEMIDE) [Concomitant]
  10. AMARYL [Concomitant]
  11. MIGLITOL [Concomitant]

REACTIONS (1)
  - GLUCOSE TOLERANCE IMPAIRED [None]
